FAERS Safety Report 5194363-X (Version None)
Quarter: 2006Q4

REPORT INFORMATION
  Report Type: 
  Country: None (occurrence: None)
  Receive Date: 20061228
  Receipt Date: 20061206
  Transmission Date: 20070319
  Serious: Yes (Hospitalization)
  Sender: FDA-Public Use
  Company Number: BR-PFIZER INC-2006152145

PATIENT
  Sex: Male
  Weight: 95.3 kg

DRUGS (9)
  1. SU-011,248 [Suspect]
     Indication: METASTATIC RENAL CELL CARCINOMA
     Route: 048
  2. SU-011,248 [Suspect]
     Route: 048
  3. SU-011,248 [Suspect]
     Route: 048
  4. PREDNISONE TAB [Concomitant]
     Route: 048
  5. SERTRALINE [Concomitant]
     Route: 048
  6. FORMOTEROL [Concomitant]
     Route: 048
  7. TEGASEROD [Concomitant]
     Route: 048
  8. ESOMEPRAZOLE MAGNESIUM [Concomitant]
     Route: 048
  9. CICLESONIDE [Concomitant]
     Route: 048

REACTIONS (7)
  - CHEST PAIN [None]
  - LOBAR PNEUMONIA [None]
  - LUNG INFECTION [None]
  - METASTASES TO BONE [None]
  - PLEURAL EFFUSION [None]
  - PNEUMONITIS [None]
  - PNEUMOTHORAX [None]
